FAERS Safety Report 23642596 (Version 1)
Quarter: 2024Q1

REPORT INFORMATION
  Report Type: Spontaneous
  Country: US (occurrence: None)
  Receive Date: 20240318
  Receipt Date: 20240318
  Transmission Date: 20240410
  Serious: Yes (Disabling, Other)
  Sender: FDA-Public Use
  Company Number: None

PATIENT
  Age: 86 Year
  Sex: Female
  Weight: 72.57 kg

DRUGS (1)
  1. CLONIDINE TRANSDERMAL SYSTEM [Suspect]
     Active Substance: CLONIDINE
     Indication: Hypertension
     Dates: start: 20211012, end: 20211017

REACTIONS (8)
  - Rash [None]
  - Nightmare [None]
  - Weight increased [None]
  - Genital blister [None]
  - Constipation [None]
  - Alopecia [None]
  - Weight decreased [None]
  - Urinary retention [None]

NARRATIVE: CASE EVENT DATE: 20211012
